FAERS Safety Report 8916457 (Version 1)
Quarter: 2012Q4

REPORT INFORMATION
  Report Type: 
  Country: DE (occurrence: FR)
  Receive Date: 20121120
  Receipt Date: 20121120
  Transmission Date: 20130627
  Serious: Yes (Hospitalization)
  Sender: FDA-Public Use
  Company Number: FR-FRI-1000040481

PATIENT
  Age: 84 Year
  Sex: Male

DRUGS (4)
  1. MEMANTINE [Suspect]
     Indication: DEMENTIA ALZHEIMER^S TYPE
     Dosage: 1 DF
     Route: 048
  2. DIGOXIN ^NATIVELLE^ [Suspect]
     Dates: end: 201205
  3. IMOVANE [Concomitant]
     Dosage: 1 DF
     Route: 048
  4. PARIET [Concomitant]
     Dosage: 1 DF
     Route: 048

REACTIONS (2)
  - Bradyarrhythmia [Recovering/Resolving]
  - Cardioactive drug level increased [Recovered/Resolved]
